FAERS Safety Report 21640496 (Version 2)
Quarter: 2022Q4

REPORT INFORMATION
  Report Type: Spontaneous
  Country: SG (occurrence: SG)
  Receive Date: 20221124
  Receipt Date: 20221202
  Transmission Date: 20230112
  Serious: Yes (Hospitalization)
  Sender: FDA-Public Use
  Company Number: SG-BAYER-2022P022318

PATIENT
  Sex: Female

DRUGS (1)
  1. VERICIGUAT HYDROCHLORIDE [Suspect]
     Active Substance: VERICIGUAT HYDROCHLORIDE
     Indication: Cardiac failure
     Dosage: 2.5 MG, QD

REACTIONS (5)
  - Cardiac failure [Unknown]
  - Anuria [Unknown]
  - Blood pressure systolic decreased [Unknown]
  - N-terminal prohormone brain natriuretic peptide increased [Unknown]
  - Drug intolerance [Unknown]
